FAERS Safety Report 14528561 (Version 1)
Quarter: 2018Q1

REPORT INFORMATION
  Report Type: Spontaneous
  Country: US (occurrence: US)
  Receive Date: 20180214
  Receipt Date: 20180214
  Transmission Date: 20180509
  Serious: No
  Sender: FDA-Public Use
  Company Number: US-ASTRAZENECA-2018SE18153

PATIENT
  Age: 8 Year
  Sex: Male
  Weight: 21.8 kg

DRUGS (1)
  1. SYNAGIS [Suspect]
     Active Substance: PALIVIZUMAB
     Route: 030

REACTIONS (3)
  - Vital capacity decreased [Unknown]
  - Total lung capacity decreased [Unknown]
  - Neuromyopathy [Unknown]
